FAERS Safety Report 8903309 (Version 1)
Quarter: 2012Q4

REPORT INFORMATION
  Report Type: 
  Country: BR (occurrence: BR)
  Receive Date: 20121112
  Receipt Date: 20121112
  Transmission Date: 20130627
  Serious: Yes (Other)
  Sender: FDA-Public Use
  Company Number: BR-AMGEN-BRASP2012032125

PATIENT
  Age: 57 Year
  Sex: Female
  Weight: 47 kg

DRUGS (6)
  1. ENBREL [Suspect]
     Indication: RHEUMATOID ARTHRITIS
     Dosage: 50 mg, weekly
     Route: 058
     Dates: start: 201107
  2. ENBREL [Suspect]
     Dosage: 50 mg, monthly
     Route: 058
     Dates: end: 201112
  3. METHOTREXATE [Concomitant]
     Dosage: 15 mg (6 tablets of 2.5mg), weekly
  4. PREDNISONE [Concomitant]
     Dosage: 20 mg, 1x/day
  5. INSULIN [Concomitant]
     Dosage: UNK
  6. METFORMIN [Concomitant]
     Dosage: UNK

REACTIONS (2)
  - Lung disorder [Unknown]
  - Tuberculosis [Unknown]
